FAERS Safety Report 12378429 (Version 1)
Quarter: 2016Q2

REPORT INFORMATION
  Report Type: Spontaneous
  Country: US (occurrence: US)
  Receive Date: 20160517
  Receipt Date: 20160517
  Transmission Date: 20160815
  Serious: Yes (Other)
  Sender: FDA-Public Use
  Company Number: US-MYLANLABS-2015M1001048

PATIENT

DRUGS (2)
  1. MERCAPTAMINE [Suspect]
     Active Substance: CYSTEAMINE
     Indication: CYSTINOSIS
     Dosage: IMMEDIATE-RELEASE
     Route: 065
  2. MERCAPTAMINE [Suspect]
     Active Substance: CYSTEAMINE
     Dosage: ENTERIC-RELEASE (COATED IMMEDIATE-RELEASE CAPSULES)

REACTIONS (6)
  - Breath odour [Recovering/Resolving]
  - Mesangioproliferative glomerulonephritis [Unknown]
  - Irritable bowel syndrome [Unknown]
  - Enuresis [Unknown]
  - Skin odour abnormal [Recovering/Resolving]
  - Henoch-Schonlein purpura [Unknown]

NARRATIVE: CASE EVENT DATE: 2008
